FAERS Safety Report 13578652 (Version 7)
Quarter: 2018Q1

REPORT INFORMATION
  Report Type: Report from Study
  Country: US (occurrence: BR)
  Receive Date: 20170524
  Receipt Date: 20180213
  Transmission Date: 20180508
  Serious: Yes (Life-Threatening, Hospitalization, Other)
  Sender: FDA-Public Use
  Company Number: US-SUNOVION-2017SUN002203

PATIENT
  Age: 52 Year
  Sex: Male
  Weight: 100 kg

DRUGS (5)
  1. INDACATEROL AND GLYCOPYRROLATE [Suspect]
     Active Substance: GLYCOPYRROLATE\INDACATEROL MALEATE
     Dosage: 1 DF (110 MCG INDACATEROL//50 MCG GLYCOPYRRONIUM BROMIDE), QD
     Route: 055
  2. INDACATEROL AND GLYCOPYRROLATE [Suspect]
     Active Substance: GLYCOPYRROLATE\INDACATEROL MALEATE
     Indication: EMPHYSEMA
     Dosage: 1 DF (110 MCG INDACATEROL//50 MCG GLYCOPYRRONIUM BROMIDE), QD
     Route: 055
  3. INDACATEROL AND GLYCOPYRROLATE [Suspect]
     Active Substance: GLYCOPYRROLATE\INDACATEROL MALEATE
     Indication: CHRONIC OBSTRUCTIVE PULMONARY DISEASE
     Dosage: 1 DF (110 MCG INDACATEROL//50 MCG GLYCOPYRRONIUM BROMIDE), QD
     Route: 055
  4. INDACATEROL AND GLYCOPYRROLATE [Suspect]
     Active Substance: GLYCOPYRROLATE\INDACATEROL MALEATE
     Dosage: 1 DF (110 MCG INDACATEROL//50 MCG GLYCOPYRRONIUM BROMIDE), QD
     Route: 055
  5. INDACATEROL AND GLYCOPYRROLATE [Suspect]
     Active Substance: GLYCOPYRROLATE\INDACATEROL MALEATE
     Dosage: 1 DF (110 MCG INDACATEROL//50 MCG GLYCOPYRRONIUM BROMIDE), QD
     Route: 055

REACTIONS (10)
  - Myocardial infarction [Unknown]
  - Lung disorder [Unknown]
  - Incorrect dose administered [Unknown]
  - Apparent death [Recovering/Resolving]
  - Malaise [Recovering/Resolving]
  - Wrong technique in product usage process [Unknown]
  - Aphonia [Unknown]
  - Device malfunction [Unknown]
  - Acute myocardial infarction [Recovering/Resolving]
  - Dysphoria [Unknown]

NARRATIVE: CASE EVENT DATE: 201705
